FAERS Safety Report 4909020-1 (Version None)
Quarter: 2006Q1

REPORT INFORMATION
  Report Type: 
  Country: None (occurrence: None)
  Receive Date: 20060213
  Receipt Date: 20060106
  Transmission Date: 20060701
  Serious: Yes (Life-Threatening, Hospitalization)
  Sender: FDA-Public Use
  Company Number: JP-BOEHRINGER INGELHEIM PHARMACEUTICALS, INC.-2006-BP-00275NB

PATIENT
  Sex: Female
  Weight: 44.5 kg

DRUGS (7)
  1. PRAMIPEXOLE DIHYDROCHLORIDE [Suspect]
     Indication: PARKINSON'S DISEASE
     Route: 048
     Dates: start: 20051220
  2. NORVASC [Concomitant]
     Indication: HYPERTENSION
     Route: 048
  3. CALTAN (PRECIPITATED CALCIUM CABONATE) [Concomitant]
     Indication: RENAL FAILURE
     Route: 048
  4. KALIMATE [Concomitant]
     Indication: RENAL FAILURE
     Route: 048
  5. PROCYLIN [Concomitant]
     Indication: ARTERIOSCLEROSIS OBLITERANS
     Route: 048
  6. NOVOLIN N [Concomitant]
     Indication: DIABETES MELLITUS
     Route: 058
  7. BLOPRESS [Concomitant]
     Indication: HYPERTENSION
     Route: 048

REACTIONS (1)
  - HYPERGLYCAEMIA [None]
